FAERS Safety Report 12924579 (Version 3)
Quarter: 2016Q4

REPORT INFORMATION
  Report Type: Report from Study
  Country: US (occurrence: US)
  Receive Date: 20161109
  Receipt Date: 20161230
  Transmission Date: 20170207
  Serious: Yes (Hospitalization, Other)
  Sender: FDA-Public Use
  Company Number: US-GILEAD-2016-0242275

PATIENT
  Age: 82 Year
  Sex: Female

DRUGS (11)
  1. FLUTICASONE [Concomitant]
     Active Substance: FLUTICASONE\FLUTICASONE PROPIONATE
  2. PRAVASTATIN. [Concomitant]
     Active Substance: PRAVASTATIN
  3. ACARBOSE. [Concomitant]
     Active Substance: ACARBOSE
  4. JANUVIA [Concomitant]
     Active Substance: SITAGLIPTIN PHOSPHATE
  5. OMEPRAZOLE. [Concomitant]
     Active Substance: OMEPRAZOLE
  6. TORSEMIDE. [Concomitant]
     Active Substance: TORSEMIDE
  7. METFORMIN [Concomitant]
     Active Substance: METFORMIN HYDROCHLORIDE
  8. ENOXAPARIN [Concomitant]
     Active Substance: ENOXAPARIN
  9. SILDENAFIL                         /01367502/ [Concomitant]
     Active Substance: SILDENAFIL
     Indication: PULMONARY ARTERIAL HYPERTENSION
     Dates: start: 20130827
  10. AMBRISENTAN [Suspect]
     Active Substance: AMBRISENTAN
     Indication: PULMONARY ARTERIAL HYPERTENSION
     Dosage: 5 MG, QD
     Route: 065
     Dates: start: 20130126
  11. DIGOXIN. [Concomitant]
     Active Substance: DIGOXIN

REACTIONS (4)
  - Abdominal distension [Unknown]
  - Drug dose omission [Unknown]
  - Cardiac failure [Not Recovered/Not Resolved]
  - Peripheral swelling [Unknown]
